FAERS Safety Report 25727021 (Version 1)
Quarter: 2025Q3

REPORT INFORMATION
  Report Type: Spontaneous
  Country: EU (occurrence: EU)
  Receive Date: 20250826
  Receipt Date: 20250826
  Transmission Date: 20251021
  Serious: Yes (Other)
  Sender: MYLAN
  Company Number: None

PATIENT
  Age: 65 Year
  Sex: Male
  Weight: 74.4 kg

DRUGS (24)
  1. PANTOPRAZOLE [Suspect]
     Active Substance: PANTOPRAZOLE
     Indication: Gastritis
     Dosage: 40 MILLIGRAM, QD
     Dates: start: 20250125
  2. PANTOPRAZOLE [Suspect]
     Active Substance: PANTOPRAZOLE
     Dosage: 40 MILLIGRAM, QD
     Route: 048
     Dates: start: 20250125
  3. PANTOPRAZOLE [Suspect]
     Active Substance: PANTOPRAZOLE
     Dosage: 40 MILLIGRAM, QD
     Route: 048
     Dates: start: 20250125
  4. PANTOPRAZOLE [Suspect]
     Active Substance: PANTOPRAZOLE
     Dosage: 40 MILLIGRAM, QD
     Dates: start: 20250125
  5. PEMETREXED [Suspect]
     Active Substance: PEMETREXED
     Indication: Non-small cell lung cancer metastatic
     Dates: start: 20240712, end: 20250407
  6. PEMETREXED [Suspect]
     Active Substance: PEMETREXED
     Route: 042
     Dates: start: 20240712, end: 20250407
  7. PEMETREXED [Suspect]
     Active Substance: PEMETREXED
     Route: 042
     Dates: start: 20240712, end: 20250407
  8. PEMETREXED [Suspect]
     Active Substance: PEMETREXED
     Dates: start: 20240712, end: 20250407
  9. RAMIPRIL [Suspect]
     Active Substance: RAMIPRIL
     Indication: Hypertension
     Dosage: 5 MILLIGRAM, QD
     Dates: end: 20250527
  10. RAMIPRIL [Suspect]
     Active Substance: RAMIPRIL
     Dosage: 5 MILLIGRAM, QD
     Route: 048
     Dates: end: 20250527
  11. RAMIPRIL [Suspect]
     Active Substance: RAMIPRIL
     Dosage: 5 MILLIGRAM, QD
     Route: 048
     Dates: end: 20250527
  12. RAMIPRIL [Suspect]
     Active Substance: RAMIPRIL
     Dosage: 5 MILLIGRAM, QD
     Dates: end: 20250527
  13. PREDNISOLONE [Suspect]
     Active Substance: PREDNISOLONE
     Indication: Non-small cell lung cancer metastatic
     Dosage: 150 MILLIGRAM, MONTHLY
     Dates: start: 20241001, end: 20250408
  14. PREDNISOLONE [Suspect]
     Active Substance: PREDNISOLONE
     Dosage: 150 MILLIGRAM, MONTHLY
     Route: 048
     Dates: start: 20241001, end: 20250408
  15. PREDNISOLONE [Suspect]
     Active Substance: PREDNISOLONE
     Dosage: 150 MILLIGRAM, MONTHLY
     Route: 048
     Dates: start: 20241001, end: 20250408
  16. PREDNISOLONE [Suspect]
     Active Substance: PREDNISOLONE
     Dosage: 150 MILLIGRAM, MONTHLY
     Dates: start: 20241001, end: 20250408
  17. ELIQUIS [Concomitant]
     Active Substance: APIXABAN
  18. ELIQUIS [Concomitant]
     Active Substance: APIXABAN
     Route: 065
  19. ELIQUIS [Concomitant]
     Active Substance: APIXABAN
     Route: 065
  20. ELIQUIS [Concomitant]
     Active Substance: APIXABAN
  21. XGEVA [Concomitant]
     Active Substance: DENOSUMAB
  22. XGEVA [Concomitant]
     Active Substance: DENOSUMAB
     Route: 065
  23. XGEVA [Concomitant]
     Active Substance: DENOSUMAB
     Route: 065
  24. XGEVA [Concomitant]
     Active Substance: DENOSUMAB

REACTIONS (1)
  - Renal impairment [Recovering/Resolving]

NARRATIVE: CASE EVENT DATE: 20250311
